FAERS Safety Report 7885282-6 (Version None)
Quarter: 2011Q4

REPORT INFORMATION
  Report Type: 
  Country: None (occurrence: None)
  Receive Date: 20111102
  Receipt Date: 20111025
  Transmission Date: 20120403
  Serious: Yes (Hospitalization, Other)
  Sender: FDA-Public Use
  Company Number: AU-SANOFI-AVENTIS-2011SA062816

PATIENT
  Sex: Female

DRUGS (2)
  1. CLIKSTAR [Suspect]
  2. LANTUS [Suspect]
     Route: 065

REACTIONS (1)
  - DIABETIC KETOACIDOSIS [None]
